FAERS Safety Report 10408642 (Version 1)
Quarter: 2014Q3

REPORT INFORMATION
  Report Type: Spontaneous
  Country: GB (occurrence: None)
  Receive Date: 20140821
  Receipt Date: 20140821
  Transmission Date: 20150326
  Serious: Yes (Other)
  Sender: FDA-Public Use
  Company Number: AUR-APL-2014-08721

PATIENT
  Age: 6 Decade
  Sex: Male
  Weight: 87.1 kg

DRUGS (3)
  1. IRBESARTAN 75 MG (IRBESARTAN) UNKNOWN, 75MG [Suspect]
     Active Substance: IRBESARTAN
     Indication: HYPERTENSION
     Route: 048
     Dates: start: 20140605, end: 20140623
  2. LEVOTHYROXINE (LEVOTHYROXINE) [Concomitant]
     Active Substance: LEVOTHYROXINE
  3. CANDESARTAN 2 MG (CANDESARTAN) UNKNOWN, 2MG [Suspect]
     Active Substance: CANDESARTAN
     Indication: HYPERTENSION
     Route: 048

REACTIONS (3)
  - Back pain [None]
  - Dyspnoea exertional [None]
  - Throat irritation [None]
